FAERS Safety Report 4937085-X (Version None)
Quarter: 2006Q1

REPORT INFORMATION
  Report Type: 
  Country: None (occurrence: None)
  Receive Date: 20060302
  Receipt Date: 20060213
  Transmission Date: 20060701
  Serious: Yes (Other)
  Sender: FDA-Public Use
  Company Number: JP_051108078

PATIENT
  Age: 14 Year
  Sex: Female
  Weight: 28.2 kg

DRUGS (3)
  1. SOMATROPIN (SOMATROPIN UNKNOWN MANUFACTURER) [Suspect]
     Indication: GROWTH HORMONE DEFICIENCY
  2. PREDNISOLONE [Concomitant]
  3. MIZORIBINE (MIZORIBINE) [Concomitant]

REACTIONS (9)
  - AMENORRHOEA [None]
  - BLOOD CORTICOTROPHIN DECREASED [None]
  - BLOOD FOLLICLE STIMULATING HORMONE DECREASED [None]
  - BLOOD GROWTH HORMONE DECREASED [None]
  - BLOOD LUTEINISING HORMONE DECREASED [None]
  - BODY HEIGHT BELOW NORMAL [None]
  - FAILURE TO THRIVE [None]
  - HYPOCOMPLEMENTAEMIA [None]
  - LUPUS NEPHRITIS [None]
